FAERS Safety Report 5027827-X (Version None)
Quarter: 2006Q2

REPORT INFORMATION
  Report Type: 
  Country: None (occurrence: None)
  Receive Date: 20060612
  Receipt Date: 20060523
  Transmission Date: 20061013
  Serious: No
  Sender: FDA-Public Use
  Company Number: 2006-143545-NL

PATIENT
  Age: 65 Year
  Sex: Female

DRUGS (4)
  1. MIRTAZAPINE [Suspect]
     Indication: DEPRESSION
     Dosage: 30 MG, ORAL
     Route: 048
     Dates: start: 20050401
  2. SIMVASTATIN [Concomitant]
  3. IODINE [Concomitant]
  4. CANDESARTAN [Concomitant]

REACTIONS (2)
  - NASOPHARYNGITIS [None]
  - SUPRAVENTRICULAR EXTRASYSTOLES [None]
